FAERS Safety Report 7770442-5 (Version None)
Quarter: 2011Q3

REPORT INFORMATION
  Report Type: 
  Country: None (occurrence: None)
  Receive Date: 20110922
  Receipt Date: 20100817
  Transmission Date: 20111222
  Serious: No
  Sender: FDA-Public Use
  Company Number: US-ASTRAZENECA-2010SE38574

PATIENT
  Age: 74 Year
  Sex: Female

DRUGS (4)
  1. SEROQUEL [Suspect]
     Dosage: HALF OF 25 MG TABLET
     Route: 048
     Dates: start: 20100809
  2. XANAX [Concomitant]
  3. CALCIUM CITRATE WITH VIT D [Concomitant]
  4. SEROQUEL [Suspect]
     Indication: INSOMNIA
     Route: 048
     Dates: start: 20100807

REACTIONS (7)
  - INSOMNIA [None]
  - IRRITABILITY [None]
  - INCREASED APPETITE [None]
  - THERAPEUTIC RESPONSE UNEXPECTED [None]
  - FATIGUE [None]
  - INCORRECT DOSE ADMINISTERED [None]
  - DRY MOUTH [None]
